FAERS Safety Report 8015614-X (Version None)
Quarter: 2011Q4

REPORT INFORMATION
  Report Type: 
  Country: None (occurrence: None)
  Receive Date: 20111230
  Receipt Date: 20111223
  Transmission Date: 20120403
  Serious: No
  Sender: FDA-Public Use
  Company Number: US-TEVA-315405USA

PATIENT
  Sex: Female
  Weight: 64.922 kg

DRUGS (4)
  1. TRAZODONE HCL [Concomitant]
     Indication: INSOMNIA
     Route: 048
  2. PERCOCET [Concomitant]
     Indication: PAIN
     Route: 048
  3. PLAN B ONE-STEP [Suspect]
     Indication: POST COITAL CONTRACEPTION
     Dosage: 1.5 MILLIGRAM;
     Route: 048
     Dates: start: 20111219, end: 20111219
  4. KLONOPIN [Concomitant]
     Indication: ANXIETY
     Route: 048

REACTIONS (2)
  - MENORRHAGIA [None]
  - DYSMENORRHOEA [None]
